FAERS Safety Report 9783288 (Version 1)
Quarter: 2013Q4

REPORT INFORMATION
  Report Type: Spontaneous
  Country: US (occurrence: None)
  Receive Date: 20131223
  Receipt Date: 20131223
  Transmission Date: 20140711
  Serious: Yes (Other)
  Sender: FDA-Public Use
  Company Number: EUS-2012-00914

PATIENT
  Sex: 0

DRUGS (1)
  1. ERWINASE (ASPARAGINASE) [Suspect]
     Indication: PRODUCT USED FOR UNKNOWN INDICATION
     Dosage: DOSES WERE 10,000 OR 25000 IU/M IM OR IV

REACTIONS (1)
  - Pancreatitis [None]
